FAERS Safety Report 8827963 (Version 1)
Quarter: 2012Q4

REPORT INFORMATION
  Report Type: 
  Country: US (occurrence: US)
  Receive Date: 20121005
  Receipt Date: 20121005
  Transmission Date: 20130627
  Serious: Yes (Hospitalization)
  Sender: FDA-Public Use
  Company Number: US-BAYER-2012-103001

PATIENT
  Age: 29 Year
  Sex: Female
  Weight: 109.98 kg

DRUGS (3)
  1. YASMIN [Suspect]
  2. PROVERA [Concomitant]
     Dosage: 2.5 mg, 2 tablets q (interpreted as every) day
  3. LORTAB [Concomitant]
     Dosage: 7.5/500 mg q 8 [hours] p.r.n. (interpreted as when needed).

REACTIONS (2)
  - Pulmonary embolism [None]
  - Deep vein thrombosis [None]
